FAERS Safety Report 8552885-5 (Version None)
Quarter: 2012Q3

REPORT INFORMATION
  Report Type: 
  Country: None (occurrence: None)
  Receive Date: 20120731
  Receipt Date: 20120727
  Transmission Date: 20120928
  Serious: Yes (Hospitalization)
  Sender: FDA-Public Use
  Company Number: PHHY2012CO065282

PATIENT
  Sex: Male

DRUGS (4)
  1. SANDOSTATIN LAR [Suspect]
     Indication: NEUROENDOCRINE TUMOUR
     Dosage: 20 MG, UNK
     Route: 030
     Dates: start: 20100101
  2. OMEPRAZOLE [Concomitant]
  3. AMITRIPTYLINE HCL [Concomitant]
  4. PREDNISOLONE [Concomitant]

REACTIONS (2)
  - DEHYDRATION [None]
  - UNDERWEIGHT [None]
